FAERS Safety Report 21070537 (Version 4)
Quarter: 2022Q3

REPORT INFORMATION
  Report Type: Spontaneous
  Country: FR (occurrence: FR)
  Receive Date: 20220712
  Receipt Date: 20220812
  Transmission Date: 20221027
  Serious: Yes (Death, Other)
  Sender: FDA-Public Use
  Company Number: FR-CHIESI-2022CHF03528

PATIENT
  Sex: Male
  Weight: .7 kg

DRUGS (20)
  1. CUROSURF [Suspect]
     Active Substance: PORACTANT ALFA
     Indication: Neonatal respiratory distress syndrome
     Dosage: 200 MILLIGRAM/KILOGRAM
     Dates: start: 20220701
  2. CUROSURF [Suspect]
     Active Substance: PORACTANT ALFA
     Dosage: 100 MILLIGRAM/KILOGRAM
     Dates: start: 20220701
  3. CAFFEINE [Concomitant]
     Active Substance: CAFFEINE
     Indication: Product used for unknown indication
     Dosage: 10 MILLIGRAM/KILOGRAM
     Dates: start: 20220701, end: 20220701
  4. CAFFEINE [Concomitant]
     Active Substance: CAFFEINE
     Dosage: 2.5 MILLIGRAM/KILOGRAM
     Dates: start: 20220702, end: 20220707
  5. VITAMIN K [Concomitant]
     Active Substance: PHYTONADIONE
     Indication: Product used for unknown indication
     Dosage: 0.5 MILLIGRAM
     Dates: start: 20220701, end: 20220704
  6. CLAFORAN [Concomitant]
     Active Substance: CEFOTAXIME SODIUM
     Indication: Product used for unknown indication
     Dosage: 50 MILLIGRAM/KILOGRAM, Q12H
     Dates: start: 20220701, end: 20220701
  7. GENTAMICIN [Concomitant]
     Active Substance: GENTAMICIN
     Indication: Product used for unknown indication
     Dosage: 5 MILLIGRAM/KILOGRAM
     Dates: start: 20220701, end: 20220701
  8. MORPHINE [Concomitant]
     Active Substance: MORPHINE
     Indication: Product used for unknown indication
     Dosage: 10 MICROGRAM/KILOGRAM, QH
     Dates: start: 20220702, end: 20220704
  9. MORPHINE [Concomitant]
     Active Substance: MORPHINE
     Dosage: 15 MICROGRAM/KILOGRAM, QH
     Dates: start: 20220705
  10. MORPHINE [Concomitant]
     Active Substance: MORPHINE
     Dosage: 10 MICROGRAM/KILOGRAM, QH
     Dates: start: 20220705
  11. MORPHINE [Concomitant]
     Active Substance: MORPHINE
     Dosage: 5 MICROGRAM/KILOGRAM, QH
     Dates: start: 20220706, end: 20220706
  12. MORPHINE [Concomitant]
     Active Substance: MORPHINE
     Dosage: 2.5 UNK
     Dates: start: 20220707
  13. MORPHINE [Concomitant]
     Active Substance: MORPHINE
     Dosage: 10 MICROGRAM/KILOGRAM, QH
  14. WATER FOR INJECTION [Concomitant]
     Active Substance: WATER
     Indication: Product used for unknown indication
     Dosage: 10 MILLILITRE PER KILOGRAM, QD
     Dates: start: 20220702, end: 20220703
  15. WATER FOR INJECTION [Concomitant]
     Active Substance: WATER
     Dosage: 0.5 MILLILITER, QH
     Dates: start: 20220703, end: 20220703
  16. MIDAZOLAM HYDROCHLORIDE [Concomitant]
     Active Substance: MIDAZOLAM HYDROCHLORIDE
     Indication: Product used for unknown indication
     Dosage: 10 MICROGRAM/KILOGRAM, QH
     Dates: start: 20220707, end: 20220707
  17. INSULIN NOS [Concomitant]
     Active Substance: INSULIN NOS
     Indication: Product used for unknown indication
     Dosage: 0.1 MILLILITRE PER KILOGRAM, QH
     Dates: start: 20220704
  18. ACETAMINOPHEN [Concomitant]
     Active Substance: ACETAMINOPHEN
     Indication: Product used for unknown indication
     Dosage: 20 MILLIGRAM/KILOGRAM
     Dates: start: 20220701, end: 20220701
  19. ACETAMINOPHEN [Concomitant]
     Active Substance: ACETAMINOPHEN
     Dosage: 20 MILLIGRAM/KILOGRAM, QD
     Dates: start: 20220702
  20. FLUCONAZOLE [Concomitant]
     Active Substance: FLUCONAZOLE
     Indication: Product used for unknown indication
     Dosage: 12 MILLIGRAM/KILOGRAM, QD
     Dates: start: 20220705, end: 20220705

REACTIONS (5)
  - Intraventricular haemorrhage neonatal [Fatal]
  - Bradycardia neonatal [Fatal]
  - Malaise [Unknown]
  - Infantile apnoea [Unknown]
  - Neonatal hypoxia [Unknown]

NARRATIVE: CASE EVENT DATE: 20220701
